FAERS Safety Report 6299818-2 (Version None)
Quarter: 2009Q3

REPORT INFORMATION
  Report Type: 
  Country: None (occurrence: None)
  Receive Date: 20090804
  Receipt Date: 20090721
  Transmission Date: 20100115
  Serious: Yes (Hospitalization)
  Sender: FDA-Public Use
  Company Number: TPA2009A01980

PATIENT
  Sex: Male

DRUGS (1)
  1. ULORIC [Suspect]
     Indication: GOUT
     Dosage: PER ORAL
     Route: 048
     Dates: start: 20090701

REACTIONS (2)
  - GAIT DISTURBANCE [None]
  - NERVOUS SYSTEM DISORDER [None]
